FAERS Safety Report 9755334 (Version 1)
Quarter: 2013Q4

REPORT INFORMATION
  Report Type: Spontaneous
  Country: US (occurrence: US)
  Receive Date: 20131213
  Receipt Date: 20131213
  Transmission Date: 20140711
  Serious: No
  Sender: FDA-Public Use
  Company Number: US-GLAXOSMITHKLINE-A1016296A

PATIENT
  Sex: Male

DRUGS (1)
  1. NICODERM CQ 14MG [Suspect]
     Indication: PRODUCT USED FOR UNKNOWN INDICATION

REACTIONS (4)
  - Body fat disorder [Not Recovered/Not Resolved]
  - Application site scar [Not Recovered/Not Resolved]
  - Atrophy [Not Recovered/Not Resolved]
  - Sensory disturbance [Not Recovered/Not Resolved]
